FAERS Safety Report 9865514 (Version 4)
Quarter: 2014Q1

REPORT INFORMATION
  Report Type: Spontaneous
  Country: GB (occurrence: GB)
  Receive Date: 20140203
  Receipt Date: 20140306
  Transmission Date: 20141002
  Serious: Yes (Other)
  Sender: FDA-Public Use
  Company Number: PHFR2014GB001147

PATIENT
  Age: 51 Year
  Sex: Female

DRUGS (15)
  1. TEGRETOL [Suspect]
     Indication: EPILEPSY
     Dosage: 2 DF, TWICE A DAY
     Route: 048
     Dates: start: 19990407
  2. ETODOLAC [Concomitant]
     Dosage: 1 DF, DAILY
     Dates: start: 20050112
  3. METHOTREXATE [Concomitant]
     Dosage: 7 DF, WEEKLY
     Dates: start: 20051124
  4. RANITIDINE [Concomitant]
     Dosage: 1 DF, BID
     Dates: start: 20000728
  5. ACIFOL//FOLIC ACID [Concomitant]
     Dosage: 1 DF, DAILY EXCEPT ON THURSDAY
     Dates: start: 20050811
  6. MEBEVERINE [Concomitant]
     Dosage: 2 DF, DAILY
     Dates: start: 20100510
  7. PREDNISOLONE [Concomitant]
     Dosage: 4 DF, QD
     Dates: start: 19990407
  8. HYDROXYCHLOROQUINE [Concomitant]
     Dosage: 1 DF, DAILY
     Dates: start: 19990407
  9. ALENDRONIC ACID [Concomitant]
     Dosage: 1 DF, QW
     Dates: start: 20060302
  10. MINIMS PREDNISOLONE SODIUM PHOSPHATE [Concomitant]
     Dosage: 0.5 ML, PRN
     Dates: start: 20080521
  11. ADCAL-D3 [Concomitant]
     Dosage: 1 DF, BID
     Dates: start: 20110420
  12. LAXIDO [Concomitant]
     Dosage: 1 DF, DAILY
     Dates: start: 20120517
  13. BIMATOPROST [Concomitant]
     Dosage: 1 DROP AT NIGHT TO EACH EYE
  14. CEFALEXIN [Concomitant]
     Dosage: 1 DF, QID
     Dates: start: 20140115
  15. NASEPTIN [Concomitant]
     Dosage: UNK UKN, UNK
     Dates: start: 20140210

REACTIONS (22)
  - Glaucoma [Not Recovered/Not Resolved]
  - Visual acuity tests abnormal [Unknown]
  - Nausea [Recovering/Resolving]
  - Vision blurred [Not Recovered/Not Resolved]
  - Ocular hypertension [Not Recovered/Not Resolved]
  - Open angle glaucoma [Not Recovered/Not Resolved]
  - Mitral valve stenosis [Not Recovered/Not Resolved]
  - Pulmonary hypertension [Not Recovered/Not Resolved]
  - Herpes zoster [Not Recovered/Not Resolved]
  - Ophthalmic herpes zoster [Recovering/Resolving]
  - Cataract nuclear [Recovering/Resolving]
  - Herpes simplex [Recovering/Resolving]
  - Dry eye [Not Recovered/Not Resolved]
  - Corneal disorder [Recovering/Resolving]
  - Keratitis [Recovering/Resolving]
  - Sciatica [Recovering/Resolving]
  - Neck pain [Not Recovered/Not Resolved]
  - Uveitis [Recovering/Resolving]
  - Osteopenia [Not Recovered/Not Resolved]
  - Dizziness [Recovering/Resolving]
  - Paraesthesia [Not Recovered/Not Resolved]
  - Chest pain [Recovered/Resolved]
